FAERS Safety Report 13269189 (Version 1)
Quarter: 2017Q1

REPORT INFORMATION
  Report Type: Spontaneous
  Country: RU (occurrence: RU)
  Receive Date: 20170224
  Receipt Date: 20170224
  Transmission Date: 20170428
  Serious: Yes (Death)
  Sender: FDA-Public Use
  Company Number: RU-TEVA-740612ISR

PATIENT
  Age: 16 Year
  Sex: Female

DRUGS (1)
  1. SALBUTAMOL-TEVA [Suspect]
     Active Substance: ALBUTEROL

REACTIONS (1)
  - Drug ineffective [Fatal]

NARRATIVE: CASE EVENT DATE: 20170101
